FAERS Safety Report 8610507-9 (Version None)
Quarter: 2012Q3

REPORT INFORMATION
  Report Type: 
  Country: None (occurrence: None)
  Receive Date: 20120807
  Receipt Date: 20120727
  Transmission Date: 20120928
  Serious: Yes (Hospitalization, Other)
  Sender: FDA-Public Use
  Company Number: 2012032393

PATIENT
  Sex: Male
  Weight: 104.7809 kg

DRUGS (2)
  1. CINRYZE [Suspect]
     Indication: HEREDITARY ANGIOEDEMA
     Dosage: SEE IMAGE
     Route: 042
     Dates: end: 20120719
  2. BERINERT [Suspect]
     Indication: HEREDITARY ANGIOEDEMA
     Dosage: (??-MAY-2012 INTRAVENOUS (NOT OTHERWISE SPECIFIED))
     Route: 042

REACTIONS (5)
  - OEDEMA PERIPHERAL [None]
  - ABDOMINAL DISTENSION [None]
  - VENOUS THROMBOSIS [None]
  - CATHETER SITE INFECTION [None]
  - WOUND INFECTION STAPHYLOCOCCAL [None]
